FAERS Safety Report 22329110 (Version 1)
Quarter: 2023Q2

REPORT INFORMATION
  Report Type: Spontaneous
  Country: US (occurrence: US)
  Receive Date: 20230517
  Receipt Date: 20230517
  Transmission Date: 20230722
  Serious: Yes (Other)
  Sender: FDA-Public Use
  Company Number: US-GLAXOSMITHKLINE-USCH2023020779

PATIENT

DRUGS (1)
  1. ADVIL [Suspect]
     Active Substance: IBUPROFEN
     Indication: Product used for unknown indication
     Dosage: 325 MG
     Dates: start: 20230508

REACTIONS (9)
  - Anaphylactic reaction [Unknown]
  - Respiratory distress [Unknown]
  - Loss of consciousness [Unknown]
  - Erythema [Unknown]
  - Swelling [Unknown]
  - Pruritus [Unknown]
  - Blood pressure systolic [Unknown]
  - Motor dysfunction [Unknown]
  - Rash [Unknown]

NARRATIVE: CASE EVENT DATE: 20230508
